FAERS Safety Report 24940548 (Version 1)
Quarter: 2025Q1

REPORT INFORMATION
  Report Type: Spontaneous
  Country: US (occurrence: US)
  Receive Date: 20250207
  Receipt Date: 20250207
  Transmission Date: 20250409
  Serious: Yes (Other)
  Sender: BAXTER
  Company Number: US-BAXTER-2025BAX011011

PATIENT

DRUGS (1)
  1. NITROGLYCERIN IN DEXTROSE [Suspect]
     Active Substance: NITROGLYCERIN
     Route: 013
     Dates: start: 20250130

REACTIONS (1)
  - Blood pressure systolic decreased [Unknown]

NARRATIVE: CASE EVENT DATE: 20250130
